FAERS Safety Report 8495771-1 (Version None)
Quarter: 2012Q3

REPORT INFORMATION
  Report Type: 
  Country: None (occurrence: None)
  Receive Date: 20120709
  Receipt Date: 20120702
  Transmission Date: 20120928
  Serious: Yes (Hospitalization)
  Sender: FDA-Public Use
  Company Number: US-ROCHE-GNE310561

PATIENT
  Sex: Male

DRUGS (16)
  1. LANTUS [Concomitant]
     Indication: PRODUCT USED FOR UNKNOWN INDICATION
     Dosage: UNK
     Dates: start: 20070101
  2. GLIPIZIDE [Concomitant]
     Indication: PRODUCT USED FOR UNKNOWN INDICATION
     Dosage: UNK
     Dates: start: 20070101
  3. BACITRACIN [Concomitant]
     Dates: start: 20110101
  4. INSULIN LISPRO [Concomitant]
     Dates: start: 20110101
  5. SODIUM CARBONATE [Concomitant]
     Dates: start: 20110101
  6. PROGRAF [Concomitant]
     Dates: start: 20110101
  7. HYDRALAZINE HYDROCHLORIDE [Concomitant]
     Dates: start: 20110101
  8. ASPIRIN [Concomitant]
     Indication: PRODUCT USED FOR UNKNOWN INDICATION
     Dosage: UNK
     Dates: start: 20100301
  9. MYFORTIC [Concomitant]
     Dates: start: 20110101
  10. AUGMENTIN '125' [Concomitant]
     Dates: start: 20120101
  11. RANIBIZUMAB [Suspect]
     Dosage: 1 MG OD THEN 2 MG
     Route: 050
     Dates: start: 20080801, end: 20110601
  12. PRAVASTATIN [Concomitant]
     Dates: start: 20110101
  13. NORVASC [Concomitant]
     Dates: start: 20110101
  14. RANIBIZUMAB [Suspect]
     Indication: DIABETIC RETINAL OEDEMA
     Dosage: 0.5 MG OS X 3 THEN PRN
     Route: 050
     Dates: start: 20001101, end: 20110201
  15. LOSARTAN POTASSIUM [Concomitant]
     Indication: PRODUCT USED FOR UNKNOWN INDICATION
     Dosage: UNK
     Dates: start: 20101001
  16. IBUPROFEN [Concomitant]
     Indication: PRODUCT USED FOR UNKNOWN INDICATION
     Dosage: UNK
     Dates: start: 20080601

REACTIONS (2)
  - OSTEOMYELITIS [None]
  - SKIN ULCER [None]
